FAERS Safety Report 8816672 (Version 1)
Quarter: 2012Q4

REPORT INFORMATION
  Report Type: Spontaneous
  Country: US (occurrence: None)
  Receive Date: 20120928
  Receipt Date: 20120928
  Transmission Date: 20130627
  Serious: Yes (Hospitalization)
  Sender: FDA-Public Use
  Company Number: UTC-023344

PATIENT
  Age: 74 Year
  Sex: Female
  Weight: 70.9 kg

DRUGS (7)
  1. TYVASO (6 MICROGRAM, AEROSOL FOR INHALATION) (TREPROSTINIL SODIUM) [Suspect]
     Indication: CHRONIC PULMONARY HEART DISEASE
     Route: 055
     Dates: start: 20120705
  2. TYVASO (6 MICROGRAM, AEROSOL FOR INHALATION) (TREPROSTINIL SODIUM) [Suspect]
     Indication: CHRONIC PULMONARY HEART DISEASE
     Route: 055
     Dates: start: 201209
  3. TYVASO (6 MICROGRAM, AEROSOL FOR INHALATION) (TREPROSTINIL SODIUM) [Suspect]
     Indication: CHRONIC PULMONARY HEART DISEASE
     Route: 055
     Dates: start: 201209
  4. REVATIO (SILDENAFIL CITRATE) (UNKNOWN) [Concomitant]
  5. COUMADIN (WARFARIN SODIUM) (UNKNOWN) [Concomitant]
  6. AMLODIPINE (UNKNOWN) [Concomitant]
  7. DILTIAZEM (UNKNOWN) [Concomitant]

REACTIONS (6)
  - Syncope [None]
  - Hypotension [None]
  - Diarrhoea [None]
  - Abdominal discomfort [None]
  - Nausea [None]
  - Dizziness [None]
